FAERS Safety Report 5278771-4 (Version None)
Quarter: 2007Q1

REPORT INFORMATION
  Report Type: 
  Country: None (occurrence: None)
  Receive Date: 20070322
  Receipt Date: 20070309
  Transmission Date: 20070707
  Serious: Yes (Death, Other)
  Sender: FDA-Public Use
  Company Number: MC200700222

PATIENT
  Age: 92 Year
  Sex: Female

DRUGS (1)
  1. ANGIOMAX [Suspect]
     Indication: PERCUTANEOUS CORONARY INTERVENTION
     Dates: start: 20070201, end: 20070201

REACTIONS (4)
  - FEMORAL ARTERY OCCLUSION [None]
  - IATROGENIC INJURY [None]
  - INJECTION SITE HAEMATOMA [None]
  - RESPIRATORY FAILURE [None]
